FAERS Safety Report 5324754-5 (Version None)
Quarter: 2007Q2

REPORT INFORMATION
  Report Type: 
  Country: None (occurrence: None)
  Receive Date: 20070515
  Receipt Date: 20070504
  Transmission Date: 20071010
  Serious: No
  Sender: FDA-Public Use
  Company Number: PHBS2007BR07314

PATIENT
  Age: 56 Year
  Sex: Male

DRUGS (6)
  1. TEGRETOL [Suspect]
     Indication: CONVULSION
     Dosage: 1200 MG/DAY
     Route: 048
     Dates: start: 20030101
  2. TEGRETOL [Suspect]
     Indication: CONVULSION
     Dosage: 400 MG, BID
     Route: 048
  3. RIVOTRIL [Concomitant]
     Indication: CONVULSION
     Dosage: 1 MG/DAY
     Route: 048
  4. BACLOFEN [Concomitant]
     Indication: CONVULSION
     Dosage: 30 MG/DAY
     Route: 048
  5. HIDANTAL [Concomitant]
     Indication: CONVULSION
     Dosage: 300 MG/DAY
     Route: 048
  6. HIDANTAL [Concomitant]
     Dosage: 200 MG/DAY
     Route: 048

REACTIONS (1)
  - CONVULSION [None]
